FAERS Safety Report 16882205 (Version 6)
Quarter: 2020Q1

REPORT INFORMATION
  Report Type: Report from Study
  Country: US (occurrence: US)
  Receive Date: 20191003
  Receipt Date: 20200131
  Transmission Date: 20200409
  Serious: Yes (Hospitalization, Other)
  Sender: FDA-Public Use
  Company Number: US-BRISTOL-MYERS SQUIBB COMPANY-BMS-2019-057385

PATIENT
  Age: 60 Year
  Sex: Female

DRUGS (6)
  1. IPILIMUMAB [Suspect]
     Active Substance: IPILIMUMAB
     Indication: MALIGNANT MELANOMA
     Dosage: UNK UNK, Q3WK-COMBINATION THERAPY WITH NIVOLUMAB AND IPILIMUMAB
     Route: 042
     Dates: start: 20190618
  2. NIVOLUMAB [Suspect]
     Active Substance: NIVOLUMAB
     Indication: MALIGNANT MELANOMA
     Dosage: UNK, Q2WK, NIVOLUMAB MONOTHERAPY
     Route: 042
     Dates: start: 20190521
  3. NIVOLUMAB [Suspect]
     Active Substance: NIVOLUMAB
     Indication: PRODUCT USED FOR UNKNOWN INDICATION
     Dosage: UNK, Q4WK, MONOTHERAPY
     Route: 042
     Dates: start: 20190910, end: 20190910
  4. NIVOLUMAB [Suspect]
     Active Substance: NIVOLUMAB
     Indication: PRODUCT USED FOR UNKNOWN INDICATION
     Dosage: 240 MILLIGRAM, MONOTHERAPY (INFUSION 8)
     Route: 042
     Dates: start: 20191008, end: 20191008
  5. NIVOLUMAB [Suspect]
     Active Substance: NIVOLUMAB
     Indication: PRODUCT USED FOR UNKNOWN INDICATION
     Dosage: UNK, Q3WK, COMBINATION THERAPY-NIVOLUMAB AND IPILIMUMAB
     Route: 042
     Dates: start: 20190618, end: 20190820
  6. NIVOLUMAB [Suspect]
     Active Substance: NIVOLUMAB
     Indication: PRODUCT USED FOR UNKNOWN INDICATION
     Dosage: 480 MILLIGRAM, QMO (INFUSION 9)
     Route: 042
     Dates: start: 20191022

REACTIONS (46)
  - Dyspnoea [Recovered/Resolved]
  - Pruritus [Recovered/Resolved]
  - Faeces hard [Recovered/Resolved]
  - Chest discomfort [Recovered/Resolved]
  - Lymphadenopathy [Recovering/Resolving]
  - Fatigue [Not Recovered/Not Resolved]
  - Irritability [Not Recovered/Not Resolved]
  - Head discomfort [Recovered/Resolved]
  - Arthralgia [Not Recovered/Not Resolved]
  - Pneumonia [Recovered/Resolved]
  - Constipation [Recovered/Resolved]
  - Dehydration [Recovered/Resolved]
  - Asthenia [Recovering/Resolving]
  - Mumps [Not Recovered/Not Resolved]
  - Bowel movement irregularity [Recovered/Resolved]
  - Headache [Recovered/Resolved]
  - Hypopnoea [Recovered/Resolved]
  - Haemorrhoids [Recovered/Resolved]
  - Pustule [Not Recovered/Not Resolved]
  - Feeling abnormal [Unknown]
  - Pain [Recovered/Resolved]
  - Diarrhoea [Recovered/Resolved]
  - Hyperhidrosis [Not Recovered/Not Resolved]
  - Pyrexia [Recovered/Resolved]
  - Sciatica [Recovering/Resolving]
  - Pain in extremity [Unknown]
  - Abnormal sensation in eye [Recovered/Resolved]
  - Dry eye [Recovered/Resolved]
  - Eye disorder [Recovered/Resolved]
  - Rash [Not Recovered/Not Resolved]
  - Neck pain [Unknown]
  - Yellow skin [Unknown]
  - Thinking abnormal [Unknown]
  - Vision blurred [Unknown]
  - Cough [Recovered/Resolved]
  - Chills [Recovered/Resolved]
  - Decreased appetite [Recovered/Resolved]
  - Urinary tract infection [Recovered/Resolved]
  - Exfoliative rash [Unknown]
  - Discomfort [Unknown]
  - Peripheral coldness [Unknown]
  - Productive cough [Unknown]
  - Influenza like illness [Recovered/Resolved]
  - Swelling [Recovered/Resolved]
  - Oropharyngeal pain [Recovered/Resolved]
  - Myalgia [Not Recovered/Not Resolved]

NARRATIVE: CASE EVENT DATE: 20190521
